FAERS Safety Report 16585713 (Version 1)
Quarter: 2019Q3

REPORT INFORMATION
  Report Type: Spontaneous
  Country: US (occurrence: US)
  Receive Date: 20190717
  Receipt Date: 20190717
  Transmission Date: 20191004
  Serious: No
  Sender: FDA-Public Use
  Company Number: US-BAYER-2019-133704

PATIENT
  Age: 54 Year
  Sex: Female
  Weight: 64 kg

DRUGS (2)
  1. ALEVE [Suspect]
     Active Substance: NAPROXEN SODIUM
     Indication: PAIN
     Dosage: 1 DF
     Route: 048
     Dates: start: 201906
  2. VITAMINS NOS [Concomitant]
     Active Substance: VITAMINS
     Dosage: UNK

REACTIONS (4)
  - Tongue discomfort [Unknown]
  - Regurgitation [Unknown]
  - Paraesthesia oral [Unknown]
  - Dyspnoea [Unknown]

NARRATIVE: CASE EVENT DATE: 201906
